FAERS Safety Report 10656654 (Version 1)
Quarter: 2014Q4

REPORT INFORMATION
  Report Type: Spontaneous
  Country: US (occurrence: US)
  Receive Date: 20141216
  Receipt Date: 20141216
  Transmission Date: 20150529
  Serious: No
  Sender: FDA-Public Use
  Company Number: US-ASTRAZENECA-2014SE94674

PATIENT
  Age: 26275 Day
  Sex: Male
  Weight: 93 kg

DRUGS (10)
  1. PULMICORT FLEXHALER [Suspect]
     Active Substance: BUDESONIDE
     Indication: COUGH
     Dosage: 180 MCG, 360 UG; 2 PUFFS 2 TIMES A DAY
     Route: 055
     Dates: start: 20141128
  2. PULMICORT FLEXHALER [Suspect]
     Active Substance: BUDESONIDE
     Indication: ATELECTASIS
     Dosage: 180 MCG, 360 UG; 2 PUFFS 2 TIMES A DAY
     Route: 055
     Dates: start: 20141128
  3. PULMICORT FLEXHALER [Suspect]
     Active Substance: BUDESONIDE
     Indication: PNEUMOTHORAX
     Dosage: 180 MCG, 360 UG; 2 PUFFS 2 TIMES A DAY
     Route: 055
     Dates: start: 20141128
  4. LIPITOR [Concomitant]
     Active Substance: ATORVASTATIN CALCIUM
     Indication: DIABETES MELLITUS
  5. NOVALOG INSULIN BY INSULIN PUMP [Concomitant]
     Indication: DIABETES MELLITUS
     Dosage: 30 TO 40 UNITS PER DAY
  6. ASPIRIN. [Concomitant]
     Active Substance: ASPIRIN
     Indication: CARDIAC DISORDER
     Dosage: DAILY
  7. ATENOLOL. [Suspect]
     Active Substance: ATENOLOL
     Indication: PALPITATIONS
     Route: 048
     Dates: start: 201410
  8. PRILOSEC [Suspect]
     Active Substance: OMEPRAZOLE MAGNESIUM
     Indication: GASTROOESOPHAGEAL REFLUX DISEASE
     Route: 048
  9. GLUCOSAMINE CONDROITIN [Concomitant]
     Indication: ARTHRITIS
     Dosage: GLUCOSAMINE 1500 MG, CONDROITIN 1200 MG, 2 TABLETS DAILY
  10. TIMOLIGFS [Concomitant]
     Indication: GLAUCOMA
     Dosage: 0.5%; 1 DROP EACH EYE; TWO TIMES A DAY
     Route: 047
     Dates: start: 2004

REACTIONS (3)
  - Drug dose omission [Recovered/Resolved]
  - Cough [Not Recovered/Not Resolved]
  - Device use error [Unknown]

NARRATIVE: CASE EVENT DATE: 20141128
